FAERS Safety Report 19778635 (Version 1)
Quarter: 2021Q3

REPORT INFORMATION
  Report Type: Spontaneous
  Country: US (occurrence: US)
  Receive Date: 20210830
  Receipt Date: 20210830
  Transmission Date: 20211014
  Serious: Yes (Hospitalization)
  Sender: FDA-Public Use
  Company Number: None

PATIENT
  Age: 14 Year
  Sex: Female

DRUGS (1)
  1. REMICADE [Suspect]
     Active Substance: INFLIXIMAB
     Dosage: ?          OTHER FREQUENCY:WEEK 0;?
     Route: 042
     Dates: start: 20210708, end: 20210715

REACTIONS (2)
  - Incorrect dose administered [None]
  - Condition aggravated [None]

NARRATIVE: CASE EVENT DATE: 20210712
